FAERS Safety Report 16686615 (Version 1)
Quarter: 2019Q3

REPORT INFORMATION
  Report Type: Spontaneous
  Country: GB (occurrence: GB)
  Receive Date: 20190809
  Receipt Date: 20190809
  Transmission Date: 20191004
  Serious: Yes (Life-Threatening)
  Sender: FDA-Public Use
  Company Number: GB-TEVA-2019-GB-1088880

PATIENT
  Age: 59 Year
  Sex: Female
  Weight: 82.7 kg

DRUGS (10)
  1. MENATETRENONE [Concomitant]
     Active Substance: MENATETRENONE
  2. FISH OIL [Concomitant]
     Active Substance: FISH OIL
  3. VITAMIN D [Concomitant]
     Active Substance: VITAMIN D NOS
     Dosage: 4000 IU
  4. ASCORBIC ACID. [Concomitant]
     Active Substance: ASCORBIC ACID
  5. ZOLEDRONIC ACID [Suspect]
     Active Substance: ZOLEDRONIC ACID
     Indication: PROPHYLAXIS
     Dosage: 5 MG
     Route: 042
     Dates: start: 20190503, end: 20190503
  6. MAGNESIUM [Concomitant]
     Active Substance: MAGNESIUM
  7. LETROZOLE. [Concomitant]
     Active Substance: LETROZOLE
  8. MULTIVITAMIN [Concomitant]
     Active Substance: VITAMINS
  9. CALCIUM [Concomitant]
     Active Substance: CALCIUM
     Dosage: 400 MG
  10. CURCUMIN E100 [Concomitant]

REACTIONS (5)
  - Pyrexia [Unknown]
  - Pain [Unknown]
  - Palpitations [Unknown]
  - Vomiting [Unknown]
  - Conjunctivitis [Unknown]

NARRATIVE: CASE EVENT DATE: 20190503
